FAERS Safety Report 18665359 (Version 12)
Quarter: 2022Q2

REPORT INFORMATION
  Report Type: Spontaneous
  Country: GB (occurrence: GB)
  Receive Date: 20201225
  Receipt Date: 20220510
  Transmission Date: 20220721
  Serious: Yes (Life-Threatening, Hospitalization, Other)
  Sender: FDA-Public Use
  Company Number: None

PATIENT
  Age: 69 Year
  Sex: Female

DRUGS (37)
  1. DOCETAXEL [Suspect]
     Active Substance: DOCETAXEL
     Indication: Breast cancer metastatic
     Dosage: 124 MG, Q3W
     Route: 042
     Dates: start: 20151106, end: 20151106
  2. PACLITAXEL [Suspect]
     Active Substance: PACLITAXEL
     Indication: Breast cancer metastatic
     Dosage: 138 MG, Q4W
     Route: 042
     Dates: start: 20151203, end: 20160203
  3. PACLITAXEL [Suspect]
     Active Substance: PACLITAXEL
     Dosage: 134 MG, Q4W
     Route: 042
     Dates: start: 20151210
  4. PACLITAXEL [Suspect]
     Active Substance: PACLITAXEL
     Dosage: 125 MG, Q4W
     Route: 042
     Dates: start: 20160204, end: 20160218
  5. PACLITAXEL [Suspect]
     Active Substance: PACLITAXEL
     Dosage: 102 MG, WEEKLY
     Route: 042
     Dates: start: 20160303, end: 20160310
  6. PACLITAXEL [Suspect]
     Active Substance: PACLITAXEL
     Dosage: 68 MG, WEEKLY
     Route: 042
     Dates: start: 20160303, end: 20160310
  7. PACLITAXEL [Suspect]
     Active Substance: PACLITAXEL
     Dosage: 102 MG, Q4W
     Dates: start: 20160204, end: 20160218
  8. PACLITAXEL [Suspect]
     Active Substance: PACLITAXEL
     Dosage: 139, Q4W
     Route: 041
     Dates: start: 20151210
  9. TRASTUZUMAB [Suspect]
     Active Substance: TRASTUZUMAB
     Indication: Breast cancer metastatic
     Dosage: 450 MG, 1X
     Route: 041
     Dates: start: 20151105, end: 20151105
  10. TRASTUZUMAB [Suspect]
     Active Substance: TRASTUZUMAB
     Dosage: 350 MG, Q3W
     Route: 042
     Dates: start: 20151203, end: 20180427
  11. TRASTUZUMAB [Suspect]
     Active Substance: TRASTUZUMAB
     Dosage: 336 MG, Q3W
     Route: 042
     Dates: start: 20180518, end: 20190427
  12. PERTUZUMAB [Suspect]
     Active Substance: PERTUZUMAB
     Indication: Breast cancer metastatic
     Dosage: 840 MG, 1X
     Route: 042
     Dates: start: 20151105, end: 20151105
  13. PERTUZUMAB [Suspect]
     Active Substance: PERTUZUMAB
     Dosage: 420 MG, TIW (MAINTENANCE DOSE)
     Route: 042
     Dates: start: 20151203
  14. HERCEPTIN [Suspect]
     Active Substance: TRASTUZUMAB
     Dosage: 450 MG, 1X
     Route: 042
     Dates: start: 20151105, end: 20151105
  15. HERCEPTIN [Suspect]
     Active Substance: TRASTUZUMAB
     Dosage: 300 UNK, TIW
     Route: 042
     Dates: start: 20151203, end: 20180427
  16. LORATADINE [Concomitant]
     Active Substance: LORATADINE
     Indication: Product used for unknown indication
     Dosage: UNK
     Route: 048
     Dates: start: 20151119, end: 20151217
  17. METOCLOPRAMIDE [Concomitant]
     Active Substance: METOCLOPRAMIDE
     Indication: Prophylaxis
     Dosage: 10 MG
     Route: 048
     Dates: start: 20151203
  18. METOCLOPRAMIDE [Concomitant]
     Active Substance: METOCLOPRAMIDE
     Indication: Prophylaxis of nausea and vomiting
  19. TRIMETHOPRIM [Concomitant]
     Active Substance: TRIMETHOPRIM
     Indication: Urinary tract infection
     Dosage: 200 MG, 2X/DAY
     Route: 048
     Dates: start: 20151210
  20. TRAMADOL HYDROCHLORIDE [Concomitant]
     Active Substance: TRAMADOL HYDROCHLORIDE
     Indication: Prophylaxis
     Dosage: 50 MG
     Route: 048
     Dates: start: 20151105
  21. RANITIDINE [Concomitant]
     Active Substance: RANITIDINE
     Indication: Prophylaxis
     Dosage: 150 MG, UNK 1 TABLET TWICE A DAY FOR 3 DAYS
     Route: 048
     Dates: start: 20151203
  22. LOPERAMIDE [Concomitant]
     Active Substance: LOPERAMIDE
     Indication: Prophylaxis
     Dosage: 4 TABLET TWICE A DAY FOR 3 DAYS
     Route: 048
     Dates: start: 20151203
  23. CETIRIZINE [Concomitant]
     Active Substance: CETIRIZINE HYDROCHLORIDE
     Indication: Prophylaxis
     Dosage: 10 MG, UNK 1 TABLET AT NIGHT FOR 3 DAYS
     Route: 048
     Dates: start: 20151203
  24. CHLORHEXIDINE [Concomitant]
     Active Substance: CHLORHEXIDINE
     Indication: Prophylaxis
     Dosage: 4DF, QD
     Route: 048
     Dates: start: 20151105
  25. DEXAMETHASONE [Concomitant]
     Active Substance: DEXAMETHASONE
     Indication: Prophylaxis
     Dosage: 8 MG
     Route: 048
     Dates: start: 20151105
  26. ATORVASTATIN [Concomitant]
     Active Substance: ATORVASTATIN
     Dosage: 40 MG, 1X/DAY
     Route: 048
     Dates: start: 20170701
  27. CLOPIDOGREL [Concomitant]
     Active Substance: CLOPIDOGREL BISULFATE
     Indication: Product used for unknown indication
     Dosage: UNK
     Route: 048
     Dates: start: 20170701
  28. RAMIPRIL [Concomitant]
     Active Substance: RAMIPRIL
     Indication: Product used for unknown indication
     Dosage: 2.5 MG, QD
     Route: 048
     Dates: start: 20170523
  29. RAMIPRIL [Concomitant]
     Active Substance: RAMIPRIL
     Dosage: 1.25 MG, 2X/DAY
     Route: 048
     Dates: start: 20170523
  30. LANSOPRAZOLE [Concomitant]
     Active Substance: LANSOPRAZOLE
     Dosage: 30 MG, QD
     Route: 048
     Dates: start: 20170312
  31. ASPIRIN [Concomitant]
     Active Substance: ASPIRIN
     Indication: Product used for unknown indication
     Dosage: 75 MG, QD
     Route: 048
     Dates: start: 20170523, end: 20170701
  32. ASPIRIN [Concomitant]
     Active Substance: ASPIRIN
     Dosage: 75 MG, QD
     Route: 048
     Dates: start: 20170701
  33. ROSUVASTATIN [Concomitant]
     Active Substance: ROSUVASTATIN
     Indication: Product used for unknown indication
     Dosage: 5 MG
     Route: 048
     Dates: start: 201806, end: 201911
  34. EZETIMIBE [Concomitant]
     Active Substance: EZETIMIBE
     Indication: Product used for unknown indication
     Dosage: UNK
     Route: 048
     Dates: start: 2019
  35. ROSUVASTATIN CALCIUM [Concomitant]
     Active Substance: ROSUVASTATIN CALCIUM
     Indication: Product used for unknown indication
     Dosage: 5 MG
     Route: 048
     Dates: start: 201806, end: 201911
  36. CHLORHEXIDINE GLUCONATE [Concomitant]
     Active Substance: CHLORHEXIDINE GLUCONATE
     Indication: Prophylaxis
     Dosage: 4 UNK, 1X/DAY (MOUTHWASH)
     Route: 048
     Dates: start: 20151105
  37. ASPIRIN [Concomitant]
     Active Substance: ASPIRIN
     Dosage: 75 MG, QD
     Route: 065
     Dates: start: 20170523, end: 20170701

REACTIONS (24)
  - Anaphylactic reaction [Recovered/Resolved]
  - Cystitis noninfective [Recovered/Resolved]
  - Tendonitis [Not Recovered/Not Resolved]
  - Defaecation urgency [Recovered/Resolved]
  - Malaise [Recovered/Resolved]
  - Bacterial test positive [Recovered/Resolved]
  - Dysuria [Recovered/Resolved]
  - Escherichia test positive [Not Recovered/Not Resolved]
  - Mucosal inflammation [Recovered/Resolved]
  - Urinary tract infection [Recovered/Resolved]
  - Urosepsis [Recovered/Resolved]
  - Neuropathy peripheral [Recovered/Resolved]
  - Diarrhoea [Recovered/Resolved]
  - Palmar erythema [Recovered/Resolved]
  - Rash [Recovered/Resolved]
  - Fatigue [Recovered/Resolved]
  - Hypertension [Recovered/Resolved]
  - Hypersensitivity [Recovered/Resolved]
  - Dyspnoea [Recovered/Resolved]
  - Chest discomfort [Recovered/Resolved]
  - Erythema [Recovered/Resolved]
  - Tremor [Recovered/Resolved]
  - Neuropathy peripheral [Recovered/Resolved]
  - Neuropathy peripheral [Recovered/Resolved]

NARRATIVE: CASE EVENT DATE: 20151201
